FAERS Safety Report 18573997 (Version 1)
Quarter: 2020Q4

REPORT INFORMATION
  Report Type: Spontaneous
  Country: US (occurrence: US)
  Receive Date: 20201203
  Receipt Date: 20201203
  Transmission Date: 20210114
  Serious: No
  Sender: FDA-Public Use
  Company Number: NVSC2020US321874

PATIENT
  Sex: Female

DRUGS (1)
  1. VOTRIENT [Suspect]
     Active Substance: PAZOPANIB HYDROCHLORIDE
     Indication: NEOPLASM MALIGNANT
     Dosage: 00 MG (BY MOUTH)
     Route: 048
     Dates: start: 20201119

REACTIONS (3)
  - Vomiting [Unknown]
  - Oral pain [Unknown]
  - Nausea [Unknown]
